FAERS Safety Report 21194237 (Version 2)
Quarter: 2024Q2

REPORT INFORMATION
  Report Type: Report from Study
  Country: DE (occurrence: DE)
  Receive Date: 20220810
  Receipt Date: 20240417
  Transmission Date: 20240716
  Serious: Yes (Hospitalization)
  Sender: FDA-Public Use
  Company Number: DE-JNJFOC-20220812848

PATIENT
  Age: 6 Decade
  Sex: Female

DRUGS (4)
  1. SIMPONI [Suspect]
     Active Substance: GOLIMUMAB
     Indication: Rheumatoid arthritis
     Route: 058
     Dates: start: 201903, end: 201904
  2. HUMIRA [Suspect]
     Active Substance: ADALIMUMAB
     Indication: Product used for unknown indication
     Route: 065
     Dates: start: 201905, end: 202003
  3. HUMIRA [Suspect]
     Active Substance: ADALIMUMAB
     Route: 065
     Dates: start: 201905, end: 202003
  4. HUMIRA [Suspect]
     Active Substance: ADALIMUMAB
     Route: 065
     Dates: start: 202004

REACTIONS (9)
  - Acoustic neuroma [Not Recovered/Not Resolved]
  - Benign neoplasm of thyroid gland [Not Recovered/Not Resolved]
  - Benign lung neoplasm [Unknown]
  - Dyspepsia [Unknown]
  - Gallbladder polyp [Not Recovered/Not Resolved]
  - Gastrointestinal infection [Unknown]
  - Nasopharyngitis [Unknown]
  - Tinnitus [Unknown]
  - Vertigo positional [Unknown]

NARRATIVE: CASE EVENT DATE: 20210501
